FAERS Safety Report 5771944-3 (Version None)
Quarter: 2008Q2

REPORT INFORMATION
  Report Type: 
  Country: None (occurrence: None)
  Receive Date: 20080601
  Receipt Date: 20080228
  Transmission Date: 20081010
  Serious: No
  Sender: FDA-Public Use
  Company Number: US200802007006

PATIENT
  Age: 55 Year
  Sex: Female

DRUGS (6)
  1. BYETTA [Suspect]
     Indication: TYPE 2 DIABETES MELLITUS
     Dosage: 5 UG, 2/D, SUBCUTANEOUS, 20 UG, OTHER, SUBCUTANEOUS
     Route: 058
     Dates: start: 20080228, end: 20080228
  2. BYETTA [Suspect]
     Indication: TYPE 2 DIABETES MELLITUS
     Dosage: 5 UG, 2/D, SUBCUTANEOUS, 20 UG, OTHER, SUBCUTANEOUS
     Route: 058
     Dates: start: 20080214
  3. EXENATIDE 5MCG PEN,DISPOSABLE DEVICE (EXENATIDE PEN (5MCG)) PEN,DISPOS [Concomitant]
  4. AMARYL [Concomitant]
  5. GLUCOPHAGE [Concomitant]
  6. ACTOS [Concomitant]

REACTIONS (2)
  - CONFUSIONAL STATE [None]
  - INCORRECT DOSE ADMINISTERED [None]
